FAERS Safety Report 22096593 (Version 1)
Quarter: 2023Q1

REPORT INFORMATION
  Report Type: Other
  Country: US (occurrence: None)
  Receive Date: 20230315
  Receipt Date: 20230315
  Transmission Date: 20230417
  Serious: Yes (Hospitalization)
  Sender: FDA-Public Use
  Company Number: US-ROCHE-3303821

PATIENT
  Age: 40 Year
  Sex: Male

DRUGS (3)
  1. HEMLIBRA [Suspect]
     Active Substance: EMICIZUMAB-KXWH
     Indication: Factor VIII deficiency
     Dosage: INJECT 360MG SUBCUTANEOUSLY EVERY 2 WEEK(S) (2 VIALS OF 150MG AND 1 VIAL OF 60MG)
     Route: 058
  2. HEMLIBRA [Suspect]
     Active Substance: EMICIZUMAB-KXWH
     Indication: Haemophilic arthropathy
     Dosage: INJECT 360MG SUBCUTANEOUSLY EVERY 2 WEEK(S) (2 VIALS OF 150MG AND 1 VIAL OF 60MG)
     Route: 058
  3. HEMLIBRA [Suspect]
     Active Substance: EMICIZUMAB-KXWH
     Indication: Haemophilia
     Route: 065

REACTIONS (1)
  - Haemorrhage [Unknown]
